FAERS Safety Report 23409234 (Version 1)
Quarter: 2024Q1

REPORT INFORMATION
  Report Type: Other
  Country: None (occurrence: JP)
  Receive Date: 20240117
  Receipt Date: 20240117
  Transmission Date: 20240410
  Serious: Yes (Hospitalization, Other)
  Sender: FDA-Public Use
  Company Number: JP-Creekwood Pharmaceuticals LLC-2151412

PATIENT
  Age: 39 Year
  Sex: Male

DRUGS (2)
  1. PREGABALIN [Suspect]
     Active Substance: PREGABALIN
     Indication: Neuralgia
     Route: 065
  2. CELECOXIB [Concomitant]
     Active Substance: CELECOXIB
     Route: 065

REACTIONS (9)
  - Respiratory distress [Recovering/Resolving]
  - Dyspnoea [Recovering/Resolving]
  - Decreased appetite [Recovering/Resolving]
  - Palpitations [Recovering/Resolving]
  - Restlessness [Recovered/Resolved]
  - Psychiatric symptom [Unknown]
  - Insomnia [Recovering/Resolving]
  - Anxiety [Recovered/Resolved]
  - Drug withdrawal syndrome [Unknown]
